FAERS Safety Report 20193857 (Version 1)
Quarter: 2021Q4

REPORT INFORMATION
  Report Type: Spontaneous
  Country: US (occurrence: US)
  Receive Date: 20211216
  Receipt Date: 20211216
  Transmission Date: 20220303
  Serious: No
  Sender: FDA-Public Use
  Company Number: US-PFIZER INC-202101787601

PATIENT
  Sex: Male

DRUGS (1)
  1. DESVENLAFAXINE SUCCINATE [Suspect]
     Active Substance: DESVENLAFAXINE SUCCINATE
     Dosage: 50 MG, 1X/DAY

REACTIONS (3)
  - Product dose omission issue [Unknown]
  - Irritability [Unknown]
  - Insomnia [Unknown]

NARRATIVE: CASE EVENT DATE: 20211213
